APPROVED DRUG PRODUCT: PHENTERMINE HYDROCHLORIDE
Active Ingredient: PHENTERMINE HYDROCHLORIDE
Strength: 15MG
Dosage Form/Route: CAPSULE;ORAL
Application: A202248 | Product #001 | TE Code: AA
Applicant: ELITE LABORATORIES INC
Approved: Sep 28, 2012 | RLD: No | RS: No | Type: RX